FAERS Safety Report 8258065-5 (Version None)
Quarter: 2012Q2

REPORT INFORMATION
  Report Type: 
  Country: None (occurrence: None)
  Receive Date: 20120404
  Receipt Date: 20120326
  Transmission Date: 20120825
  Serious: Yes (Hospitalization)
  Sender: FDA-Public Use
  Company Number: FR-JNJFOC-20110703722

PATIENT
  Sex: Male
  Weight: 81 kg

DRUGS (11)
  1. ABIRATERONE ACETATE [Suspect]
     Route: 048
     Dates: start: 20110601, end: 20110615
  2. LASIX [Concomitant]
  3. RAMIPRIL [Concomitant]
  4. BETASERC (BETAHISTINE HYDROCHLORIDE) [Concomitant]
  5. ABIRATERONE ACETATE [Suspect]
     Indication: PROSTATE CANCER
     Route: 048
     Dates: start: 20110707, end: 20110101
  6. IKOREL [Concomitant]
  7. PREVISCAN (FLUINDIONE) [Concomitant]
  8. PREDNISONE TAB [Suspect]
     Indication: PROSTATE CANCER
     Route: 048
     Dates: start: 20110601
  9. EZETIMIBE [Concomitant]
  10. BISOPROLOL FUMARATE [Concomitant]
  11. DITROPAN [Concomitant]

REACTIONS (1)
  - RENAL FAILURE [None]
